FAERS Safety Report 6823392-2 (Version None)
Quarter: 2010Q3

REPORT INFORMATION
  Report Type: 
  Country: None (occurrence: None)
  Receive Date: 20100708
  Receipt Date: 20100629
  Transmission Date: 20110219
  Serious: Yes (Hospitalization, Other)
  Sender: FDA-Public Use
  Company Number: US-PFIZER INC-2010058285

PATIENT
  Sex: Male
  Weight: 123.36 kg

DRUGS (4)
  1. TOVIAZ [Suspect]
     Indication: POLLAKIURIA
     Dosage: 4 MG, 1X/DAY
     Route: 048
     Dates: start: 20100430, end: 20100430
  2. GLIPIZIDE [Concomitant]
     Dosage: 10 MG, UNK
  3. LASIX [Concomitant]
     Dosage: 40 MG, UNK
  4. LOPRESSOR [Concomitant]
     Dosage: 50 MG, UNK

REACTIONS (2)
  - RENAL FAILURE ACUTE [None]
  - URINARY RETENTION [None]
